FAERS Safety Report 21964250 (Version 1)
Quarter: 2023Q1

REPORT INFORMATION
  Report Type: Spontaneous
  Country: PR (occurrence: US)
  Receive Date: 20230207
  Receipt Date: 20230207
  Transmission Date: 20230418
  Serious: No
  Sender: FDA-Public Use
  Company Number: PR-GLAXOSMITHKLINE-USCH2023AMR005203

PATIENT

DRUGS (3)
  1. VOLTAREN [Suspect]
     Active Substance: DICLOFENAC SODIUM
     Indication: Product used for unknown indication
     Dosage: UNK
  2. ARNICA MONTANA FLOWER [Suspect]
     Active Substance: ARNICA MONTANA FLOWER
     Indication: Pain
     Dosage: UNK
  3. ARNICA MONTANA FLOWER [Suspect]
     Active Substance: ARNICA MONTANA FLOWER
     Indication: Burning sensation

REACTIONS (3)
  - Movement disorder [Recovered/Resolved]
  - Dizziness [Recovered/Resolved]
  - Vertigo [Recovered/Resolved]
